FAERS Safety Report 21713862 (Version 1)
Quarter: 2022Q4

REPORT INFORMATION
  Report Type: Spontaneous
  Country: CN (occurrence: CN)
  Receive Date: 20221212
  Receipt Date: 20221212
  Transmission Date: 20230112
  Serious: Yes (Other)
  Sender: FDA-Public Use
  Company Number: CN-002147023-NVSC2022CN287334

PATIENT
  Sex: Female

DRUGS (4)
  1. LETROZOLE [Suspect]
     Active Substance: LETROZOLE
     Indication: Ovulation disorder
     Dosage: 5 MG, QD, FOR 5 CONSECUTIVE DAYS FROM THE FIFTH DAY OF THE MENSTRUAL CYCLE
     Route: 048
  2. LETROZOLE [Suspect]
     Active Substance: LETROZOLE
     Indication: Infertility
  3. MENOTROPINS [Suspect]
     Active Substance: MENOTROPINS
     Indication: Ovulation disorder
     Dosage: 75 U/ TIME, QD, FOR CONSECUTIVE 9 DAYS ON THE 6TH DAY OF THE MENSTRUAL CYCLE
     Route: 030
  4. MENOTROPINS [Suspect]
     Active Substance: MENOTROPINS
     Indication: Infertility

REACTIONS (3)
  - Abortion [Unknown]
  - Maternal exposure before pregnancy [Unknown]
  - Product use in unapproved indication [Unknown]
